FAERS Safety Report 24737839 (Version 2)
Quarter: 2024Q4

REPORT INFORMATION
  Report Type: Spontaneous
  Country: JP (occurrence: JP)
  Receive Date: 20241216
  Receipt Date: 20241224
  Transmission Date: 20250115
  Serious: Yes (Death, Life-Threatening, Other)
  Sender: ALEXION PHARMACEUTICALS
  Company Number: JP-ASTRAZENECA-240068111_064320_P_1

PATIENT
  Age: 78 Year
  Weight: 89 kg

DRUGS (36)
  1. ONDEXXYA [Suspect]
     Active Substance: ANDEXANET ALFA
     Indication: Cerebellar haemorrhage
     Dosage: 200 MILLIGRAM
  2. ONDEXXYA [Suspect]
     Active Substance: ANDEXANET ALFA
     Dosage: 200 MILLIGRAM
     Route: 042
  3. ONDEXXYA [Suspect]
     Active Substance: ANDEXANET ALFA
     Dosage: 200 MILLIGRAM
  4. ONDEXXYA [Suspect]
     Active Substance: ANDEXANET ALFA
     Dosage: 200 MILLIGRAM
     Route: 042
  5. ONDEXXYA [Suspect]
     Active Substance: ANDEXANET ALFA
     Dosage: 1760 MILLIGRAM
  6. ONDEXXYA [Suspect]
     Active Substance: ANDEXANET ALFA
     Dosage: 1760 MILLIGRAM
     Route: 042
  7. ONDEXXYA [Suspect]
     Active Substance: ANDEXANET ALFA
     Dosage: 1760 MILLIGRAM
  8. ONDEXXYA [Suspect]
     Active Substance: ANDEXANET ALFA
     Dosage: 1760 MILLIGRAM
     Route: 042
  9. AZOSEMIDE [Concomitant]
     Active Substance: AZOSEMIDE
     Indication: Cardiac failure
  10. AZOSEMIDE [Concomitant]
     Active Substance: AZOSEMIDE
     Route: 048
  11. AZOSEMIDE [Concomitant]
     Active Substance: AZOSEMIDE
  12. AZOSEMIDE [Concomitant]
     Active Substance: AZOSEMIDE
     Route: 048
  13. VALSARTAN [Concomitant]
     Active Substance: VALSARTAN
     Indication: Hypertension
  14. VALSARTAN [Concomitant]
     Active Substance: VALSARTAN
     Route: 048
  15. VALSARTAN [Concomitant]
     Active Substance: VALSARTAN
     Dosage: 80 MILLIGRAM, QD
  16. VALSARTAN [Concomitant]
     Active Substance: VALSARTAN
     Dosage: 80 MILLIGRAM, QD
     Route: 048
  17. FEBUXOSTAT [Concomitant]
     Active Substance: FEBUXOSTAT
  18. FEBUXOSTAT [Concomitant]
     Active Substance: FEBUXOSTAT
     Route: 048
  19. FEBUXOSTAT [Concomitant]
     Active Substance: FEBUXOSTAT
  20. FEBUXOSTAT [Concomitant]
     Active Substance: FEBUXOSTAT
     Route: 048
  21. ELIQUIS [Concomitant]
     Active Substance: APIXABAN
     Indication: Atrial fibrillation
  22. ELIQUIS [Concomitant]
     Active Substance: APIXABAN
     Route: 048
  23. ELIQUIS [Concomitant]
     Active Substance: APIXABAN
  24. ELIQUIS [Concomitant]
     Active Substance: APIXABAN
     Route: 048
  25. DIPYRIDAMOLE [Concomitant]
     Active Substance: DIPYRIDAMOLE
     Indication: Chronic kidney disease
  26. DIPYRIDAMOLE [Concomitant]
     Active Substance: DIPYRIDAMOLE
     Route: 048
  27. DIPYRIDAMOLE [Concomitant]
     Active Substance: DIPYRIDAMOLE
  28. DIPYRIDAMOLE [Concomitant]
     Active Substance: DIPYRIDAMOLE
     Route: 048
  29. NIFEDIPINE [Concomitant]
     Active Substance: NIFEDIPINE
     Indication: Hypertension
  30. NIFEDIPINE [Concomitant]
     Active Substance: NIFEDIPINE
     Route: 048
  31. NIFEDIPINE [Concomitant]
     Active Substance: NIFEDIPINE
  32. NIFEDIPINE [Concomitant]
     Active Substance: NIFEDIPINE
     Route: 048
  33. HALCION [Concomitant]
     Active Substance: TRIAZOLAM
  34. HALCION [Concomitant]
     Active Substance: TRIAZOLAM
     Route: 048
  35. HALCION [Concomitant]
     Active Substance: TRIAZOLAM
  36. HALCION [Concomitant]
     Active Substance: TRIAZOLAM
     Route: 048

REACTIONS (2)
  - Cerebral infarction [Fatal]
  - Cerebellar haemorrhage [Fatal]
